FAERS Safety Report 8832862 (Version 4)
Quarter: 2013Q2

REPORT INFORMATION
  Report Type: Spontaneous
  Country: AT (occurrence: AT)
  Receive Date: 20121010
  Receipt Date: 20130422
  Transmission Date: 20140414
  Serious: Yes (Hospitalization, Other)
  Sender: FDA-Public Use
  Company Number: AT-AMGEN-AUTSP2012063800

PATIENT
  Age: 12 Year
  Sex: Male
  Weight: 27 kg

DRUGS (1)
  1. ENBREL [Suspect]
     Indication: PRODUCT USED FOR UNKNOWN INDICATION
     Dosage: 25 MG, WEEKLY
     Dates: start: 20090107, end: 201209

REACTIONS (2)
  - Pulmonary function test decreased [Recovered/Resolved]
  - Pulmonary sarcoidosis [Not Recovered/Not Resolved]
